FAERS Safety Report 8601041-0 (Version None)
Quarter: 2012Q3

REPORT INFORMATION
  Report Type: 
  Country: None (occurrence: None)
  Receive Date: 20120817
  Receipt Date: 20120808
  Transmission Date: 20120928
  Serious: Yes (Hospitalization)
  Sender: FDA-Public Use
  Company Number: US-SANOFI-AVENTIS-2012SA057748

PATIENT
  Sex: Male

DRUGS (13)
  1. LEUCOVORIN CALCIUM [Suspect]
     Indication: GASTRIC CANCER
     Route: 065
     Dates: start: 20120301, end: 20120709
  2. FLUOROURACIL [Suspect]
     Indication: GASTRIC CANCER
     Route: 065
     Dates: start: 20120301, end: 20120709
  3. APREPITANT [Concomitant]
  4. DEXAMETHASONE [Concomitant]
  5. CISPLATIN [Suspect]
     Indication: GASTRIC CANCER
     Route: 065
     Dates: start: 20120301, end: 20120709
  6. LISINOPRIL [Concomitant]
  7. PANTOPRAZOLE [Concomitant]
  8. SUCRALFATE [Concomitant]
  9. DOCETAXEL [Suspect]
     Indication: GASTRIC CANCER
     Route: 065
     Dates: start: 20120301, end: 20120709
  10. TRASTUZUMAB [Suspect]
     Indication: GASTRIC CANCER
     Route: 065
     Dates: start: 20120301, end: 20120709
  11. METOCLOPRAMIDE [Concomitant]
  12. ONDANSETRON [Concomitant]
  13. OMEPRAZOLE [Concomitant]

REACTIONS (11)
  - DIARRHOEA [None]
  - ABDOMINAL PAIN [None]
  - LYMPHOPENIA [None]
  - FATIGUE [None]
  - HAEMOGLOBIN [None]
  - DIZZINESS [None]
  - PNEUMONIA [None]
  - PYREXIA [None]
  - HYPOCALCAEMIA [None]
  - DEHYDRATION [None]
  - HYPERGLYCAEMIA [None]
